FAERS Safety Report 9927115 (Version 1)
Quarter: 2014Q1

REPORT INFORMATION
  Report Type: Spontaneous
  Country: US (occurrence: US)
  Receive Date: 20140226
  Receipt Date: 20140226
  Transmission Date: 20141002
  Serious: No
  Sender: FDA-Public Use
  Company Number: US-AMGEN-USASP2014005023

PATIENT
  Age: 13 Year
  Sex: Female

DRUGS (3)
  1. ENBREL [Suspect]
     Indication: PSORIASIS
     Dosage: 50 MG, QWK
     Route: 058
     Dates: start: 20131127
  2. VITAMIN D                          /00107901/ [Concomitant]
     Dosage: UNK
  3. MAGNESIUM [Concomitant]
     Dosage: UNK

REACTIONS (2)
  - Injection site erythema [Unknown]
  - Nasopharyngitis [Unknown]
